FAERS Safety Report 20775065 (Version 1)
Quarter: 2022Q2

REPORT INFORMATION
  Report Type: Spontaneous
  Country: JP (occurrence: JP)
  Receive Date: 20220502
  Receipt Date: 20220502
  Transmission Date: 20220721
  Serious: Yes (Other)
  Sender: FDA-Public Use
  Company Number: JP-TEVA-2022-JP-2031146

PATIENT
  Age: 57 Year
  Sex: Male

DRUGS (3)
  1. TRISENOX [Suspect]
     Active Substance: ARSENIC TRIOXIDE
     Indication: Acute promyelocytic leukaemia
     Dosage: .15 MG/KG DAILY;
     Route: 042
  2. TRISENOX [Suspect]
     Active Substance: ARSENIC TRIOXIDE
     Route: 042
  3. TAMIBAROTENE [Suspect]
     Active Substance: TAMIBAROTENE
     Dosage: 6 MG/M2 DAILY;
     Route: 065

REACTIONS (3)
  - Differentiation syndrome [Recovered/Resolved]
  - Thyroiditis [Recovering/Resolving]
  - Therapeutic product effect incomplete [Unknown]
